FAERS Safety Report 12338169 (Version 1)
Quarter: 2016Q2

REPORT INFORMATION
  Report Type: Spontaneous
  Country: IR (occurrence: IR)
  Receive Date: 20160505
  Receipt Date: 20160505
  Transmission Date: 20160815
  Serious: Yes (Hospitalization, Other)
  Sender: FDA-Public Use
  Company Number: PHHY2016IR060245

PATIENT
  Age: 18 Month
  Sex: Male

DRUGS (1)
  1. NILOTINIB [Suspect]
     Active Substance: NILOTINIB
     Indication: CHRONIC MYELOID LEUKAEMIA
     Dosage: UNK
     Route: 065
     Dates: start: 200908

REACTIONS (11)
  - Chloroma [Unknown]
  - Headache [Unknown]
  - Blast crisis in myelogenous leukaemia [Unknown]
  - Periorbital oedema [Unknown]
  - Cellulitis orbital [Unknown]
  - Sinusitis [Unknown]
  - Respiratory distress [Unknown]
  - Gaze palsy [Unknown]
  - Epilepsy [Unknown]
  - Cardiomegaly [Unknown]
  - Tachycardia [Unknown]

NARRATIVE: CASE EVENT DATE: 20100703
